FAERS Safety Report 6915141-4 (Version None)
Quarter: 2010Q3

REPORT INFORMATION
  Report Type: 
  Country: None (occurrence: None)
  Receive Date: 20100809
  Receipt Date: 20100727
  Transmission Date: 20110219
  Serious: Yes (Death, Life-Threatening, Hospitalization)
  Sender: FDA-Public Use
  Company Number: US-GENZYME-CLOF-1000714

PATIENT
  Sex: Male
  Weight: 89.6 kg

DRUGS (28)
  1. CLOFARABINE [Interacting]
     Indication: ACUTE LYMPHOCYTIC LEUKAEMIA
     Dosage: 88 MG, QD
     Route: 042
     Dates: start: 20090918, end: 20090923
  2. CLOFARABINE [Interacting]
     Dosage: 84 MG, QD
     Route: 042
     Dates: start: 20091116, end: 20091120
  3. ETOPOSIDE [Suspect]
     Indication: ACUTE LYMPHOCYTIC LEUKAEMIA
     Dosage: 220 MG, QD
     Route: 042
     Dates: start: 20090919, end: 20090923
  4. ETOPOSIDE [Suspect]
     Dosage: 210 MG, QD
     Route: 042
     Dates: start: 20091116, end: 20091120
  5. CYCLOPHOSPHAMIDE [Suspect]
     Indication: ACUTE LYMPHOCYTIC LEUKAEMIA
     Dosage: 968 MG, QD
     Route: 042
     Dates: start: 20090919, end: 20090923
  6. CYCLOPHOSPHAMIDE [Suspect]
     Dosage: 924 MG, QD
     Route: 042
     Dates: start: 20091116, end: 20091120
  7. VANCOMYCIN [Concomitant]
     Indication: PYREXIA
     Dosage: 900 MG, ONCE
     Route: 042
     Dates: start: 20090919, end: 20090919
  8. CLINDAMYCIN [Concomitant]
     Indication: PYREXIA
     Dosage: 900 MG, UNK
     Route: 042
     Dates: start: 20090919, end: 20090923
  9. LISINOPRIL [Concomitant]
     Indication: HYPERTENSION
     Dosage: 5 MG, UNK
     Route: 048
     Dates: start: 20090919, end: 20090919
  10. ZOFRAN [Concomitant]
     Indication: VOMITING
     Dosage: 8 MG, UNK
     Route: 042
     Dates: start: 20090919, end: 20090926
  11. ZOFRAN [Concomitant]
     Indication: NAUSEA
     Dosage: 8 MG, UNK
     Route: 048
     Dates: start: 20091028
  12. ZOFRAN [Concomitant]
     Dosage: 8 MG, NA
     Route: 048
     Dates: start: 20051201, end: 20091128
  13. SEPTRA [Concomitant]
     Indication: PROPHYLAXIS
     Dosage: UNK
     Route: 048
     Dates: start: 20091030
  14. SEPTRA [Concomitant]
     Dosage: UNK UNK, BID
     Dates: start: 20051204, end: 20091128
  15. MAGNESIUM PLUS [Concomitant]
     Indication: PROPHYLAXIS
     Dosage: UNK
     Route: 048
     Dates: start: 20091026
  16. MAGNESIUM PLUS [Concomitant]
     Dosage: UNK UNK, TID
     Route: 051
     Dates: start: 20090625, end: 20091130
  17. ZANTAC [Concomitant]
     Indication: PROPHYLAXIS
     Dosage: UNK
     Route: 048
     Dates: start: 20091028
  18. ZANTAC [Concomitant]
     Dosage: 150 MG, BID
     Route: 048
     Dates: start: 20051201, end: 20091130
  19. TAMIFLU [Concomitant]
     Indication: PRODUCT USED FOR UNKNOWN INDICATION
     Dosage: UNK
     Route: 065
     Dates: end: 20091012
  20. MORPHINE [Concomitant]
     Indication: PAIN
     Dosage: 4 MG, UNK
     Route: 042
     Dates: start: 20091107
  21. ACETAMINOPHEN [Concomitant]
     Indication: PAIN
     Dosage: 1000 MG, UNK
     Route: 048
     Dates: start: 20091104
  22. DIPHENHYDRAMINE [Concomitant]
     Indication: VOMITING
     Dosage: 50 MG, UNK
     Dates: start: 20091104
  23. FLUCONAZOLE [Concomitant]
     Indication: PROPHYLAXIS
     Dosage: 100 MG, UNK
     Route: 048
     Dates: start: 20091113
  24. GABAPENTIN [Concomitant]
     Indication: PAIN MANAGEMENT
     Dosage: 300 MG, TID
     Route: 048
     Dates: start: 20091109, end: 20091206
  25. GABAPENTIN [Concomitant]
     Indication: NEURALGIA
  26. MORPHINE [Concomitant]
     Indication: ANALGESIC THERAPY
     Dosage: 4 MG, UNK
     Route: 042
     Dates: start: 20091115
  27. CIPROFLOXACIN [Concomitant]
     Indication: PROPHYLAXIS
     Dosage: 500 MG, BID
     Route: 048
     Dates: start: 20091121, end: 20091128
  28. VORICONAZOLE [Concomitant]
     Indication: PROPHYLAXIS
     Dosage: 200 MG, BID
     Route: 048
     Dates: start: 20091121, end: 20091208

REACTIONS (11)
  - CAPILLARY LEAK SYNDROME [None]
  - CENTRAL NERVOUS SYSTEM INFECTION [None]
  - HERPES ZOSTER [None]
  - HYPERURICAEMIA [None]
  - HYPOKALAEMIA [None]
  - HYPOPHOSPHATAEMIA [None]
  - HYPOTENSION [None]
  - LEUKOCYTOSIS [None]
  - LUNG INFECTION [None]
  - SEPSIS [None]
  - TUMOUR LYSIS SYNDROME [None]
